FAERS Safety Report 12162624 (Version 2)
Quarter: 2016Q1

REPORT INFORMATION
  Report Type: Other
  Country: IT (occurrence: IT)
  Receive Date: 20160309
  Receipt Date: 20160329
  Transmission Date: 20160526
  Serious: Yes (Hospitalization)
  Sender: FDA-Public Use
  Company Number: IT-MYLANLABS-2016M1008998

PATIENT

DRUGS (2)
  1. LORAZEPAM. [Suspect]
     Active Substance: LORAZEPAM
     Indication: ANXIETY
     Dosage: 20 MG, TOTAL
     Route: 048
     Dates: start: 20151112, end: 20151112
  2. DELORAZEPAM [Suspect]
     Active Substance: DELORAZEPAM
     Indication: ANXIETY
     Dosage: 40 MG, TOTAL
     Route: 048
     Dates: start: 20151112, end: 20151112

REACTIONS (4)
  - Intentional self-injury [Recovering/Resolving]
  - Intentional overdose [Recovering/Resolving]
  - Psychomotor retardation [Recovering/Resolving]
  - Sopor [Recovering/Resolving]

NARRATIVE: CASE EVENT DATE: 20151112
